FAERS Safety Report 10396254 (Version 1)
Quarter: 2014Q3

REPORT INFORMATION
  Report Type: Spontaneous
  Country: CN (occurrence: CN)
  Receive Date: 20140820
  Receipt Date: 20140820
  Transmission Date: 20150326
  Serious: Yes (Death, Hospitalization)
  Sender: FDA-Public Use
  Company Number: PHHY2014CN101064

PATIENT
  Age: 56 Year
  Sex: Female

DRUGS (8)
  1. CLOPIDOGREL [Concomitant]
     Active Substance: CLOPIDOGREL BISULFATE
  2. METOPROLOL [Concomitant]
     Active Substance: METOPROLOL
  3. ISOSORBIDE MONONITE [Concomitant]
  4. HEPARIN [Concomitant]
     Active Substance: HEPARIN SODIUM
  5. LIDOCAINE. [Suspect]
     Active Substance: LIDOCAINE
     Dosage: 50 MG, UNK
     Route: 042
  6. FLUVASTATIN [Concomitant]
     Active Substance: FLUVASTATIN SODIUM
  7. ASPIRIN. [Concomitant]
     Active Substance: ASPIRIN
  8. BENAZEPRIL HYDROCHLORIDE. [Concomitant]
     Active Substance: BENAZEPRIL HYDROCHLORIDE

REACTIONS (2)
  - Ventricular fibrillation [Fatal]
  - Ventricular tachycardia [Fatal]
